FAERS Safety Report 7076075-0 (Version None)
Quarter: 2010Q4

REPORT INFORMATION
  Report Type: 
  Country: None (occurrence: None)
  Receive Date: 20101101
  Receipt Date: 20101026
  Transmission Date: 20110411
  Serious: No
  Sender: FDA-Public Use
  Company Number: US-BIOGENIDEC-2010BI037057

PATIENT
  Age: 51 Year
  Sex: Female

DRUGS (1)
  1. AVONEX [Suspect]
     Indication: MULTIPLE SCLEROSIS
     Route: 030
     Dates: start: 20020101

REACTIONS (6)
  - GAIT DISTURBANCE [None]
  - INFLUENZA LIKE ILLNESS [None]
  - INJECTION SITE PAIN [None]
  - INJURY ASSOCIATED WITH DEVICE [None]
  - MALAISE [None]
  - OEDEMA PERIPHERAL [None]
